FAERS Safety Report 15557672 (Version 3)
Quarter: 2018Q4

REPORT INFORMATION
  Report Type: Report from Study
  Country: None (occurrence: US)
  Receive Date: 20181027
  Receipt Date: 20181109
  Transmission Date: 20190205
  Serious: Yes (Hospitalization, Other)
  Sender: FDA-Public Use
  Company Number: US-ABBVIE-18K-163-2528974-00

PATIENT
  Age: 25 Year
  Sex: Male

DRUGS (2)
  1. HUMIRA [Suspect]
     Active Substance: ADALIMUMAB
     Indication: CROHN^S DISEASE
     Dosage: CITRATE FREE PEN
     Route: 058
     Dates: start: 20181103
  2. HUMIRA [Suspect]
     Active Substance: ADALIMUMAB
     Indication: PSORIASIS
     Dosage: CITRATE FREE PEN
     Route: 058
     Dates: start: 20181012, end: 201810

REACTIONS (23)
  - Pyrexia [Recovering/Resolving]
  - Injection site pain [Recovered/Resolved]
  - Viral infection [Recovering/Resolving]
  - Chest pain [Recovering/Resolving]
  - Epistaxis [Unknown]
  - Anal fistula [Not Recovered/Not Resolved]
  - Head injury [Unknown]
  - Injection site vesicles [Not Recovered/Not Resolved]
  - Anal haemorrhage [Not Recovered/Not Resolved]
  - Generalised tonic-clonic seizure [Unknown]
  - Chills [Recovering/Resolving]
  - Pain [Recovering/Resolving]
  - Skin discolouration [Unknown]
  - Mental status changes [Not Recovered/Not Resolved]
  - Migraine [Recovered/Resolved with Sequelae]
  - Abdominal pain [Recovering/Resolving]
  - Confusional state [Unknown]
  - Dizziness [Recovering/Resolving]
  - Syncope [Recovering/Resolving]
  - Pain in extremity [Recovering/Resolving]
  - Arthralgia [Recovering/Resolving]
  - Fall [Unknown]
  - Erythema [Unknown]

NARRATIVE: CASE EVENT DATE: 201810
